FAERS Safety Report 11816508 (Version 3)
Quarter: 2018Q2

REPORT INFORMATION
  Report Type: Spontaneous
  Country: US (occurrence: US)
  Receive Date: 20151210
  Receipt Date: 20180529
  Transmission Date: 20180711
  Serious: Yes (Other)
  Sender: FDA-Public Use
  Company Number: US-ASTRAZENECA-2015SF20813

PATIENT
  Age: 700 Month
  Sex: Female
  Weight: 68 kg

DRUGS (4)
  1. SINGULAIR [Concomitant]
     Active Substance: MONTELUKAST SODIUM
     Indication: ASTHMA
  2. TUDORZA PRESSAIR [Suspect]
     Active Substance: ACLIDINIUM BROMIDE
     Indication: ASTHMA
     Dosage: 400 MCG, TWO TIMES A DAY, 1 PUFF IN THE MORNING AND 1 PUFF IN THE EVENING
     Route: 055
     Dates: start: 20151128, end: 201511
  3. SYMBICORT [Suspect]
     Active Substance: BUDESONIDE\FORMOTEROL FUMARATE DIHYDRATE
     Indication: ASTHMA
     Dosage: UNKNOWN UNKNOWN
     Route: 055
  4. SYMBICORT [Suspect]
     Active Substance: BUDESONIDE\FORMOTEROL FUMARATE DIHYDRATE
     Indication: ASTHMA
     Dosage: 160-4.5 DOSAGE, 2 PUFFS TWICE A DAY UNKNOWN
     Route: 055
     Dates: start: 201802

REACTIONS (12)
  - Oropharyngeal pain [Unknown]
  - Bronchitis [Unknown]
  - Ovarian cancer [Unknown]
  - Dysphonia [Unknown]
  - Viral infection [Unknown]
  - Device malfunction [Unknown]
  - Ear infection [Unknown]
  - Cough [Recovering/Resolving]
  - Dysgeusia [Unknown]
  - Product use in unapproved indication [Unknown]
  - Laryngitis fungal [Unknown]
  - Off label use [Unknown]

NARRATIVE: CASE EVENT DATE: 201511
